FAERS Safety Report 22173505 (Version 1)
Quarter: 2023Q2

REPORT INFORMATION
  Report Type: Spontaneous
  Country: US (occurrence: None)
  Receive Date: 20230404
  Receipt Date: 20230404
  Transmission Date: 20230721
  Serious: Yes (Other)
  Sender: FDA-Public Use
  Company Number: None

PATIENT
  Age: 78 Year
  Sex: Female
  Weight: 110.68 kg

DRUGS (2)
  1. NEXLETOL [Suspect]
     Active Substance: BEMPEDOIC ACID
     Dosage: 1 DAILY   ONLY?
  2. UNSPECIFIED INGREDIENT [Suspect]
     Active Substance: UNSPECIFIED INGREDIENT
     Indication: Product used for unknown indication

REACTIONS (25)
  - Middle insomnia [None]
  - Burning sensation [None]
  - Burning sensation [None]
  - Hypoaesthesia [None]
  - Dyspnoea [None]
  - Hypoaesthesia oral [None]
  - Pruritus [None]
  - Abdominal discomfort [None]
  - Neuralgia [None]
  - Pain [None]
  - Diarrhoea [None]
  - Vomiting [None]
  - Cough [None]
  - Choking [None]
  - Neuropathy peripheral [None]
  - Movement disorder [None]
  - Skin swelling [None]
  - Skin texture abnormal [None]
  - Feeling abnormal [None]
  - Peripheral coldness [None]
  - Hunger [None]
  - Flatulence [None]
  - Gastrointestinal pain [None]
  - Gait disturbance [None]
  - Asthenia [None]

NARRATIVE: CASE EVENT DATE: 20230322
